FAERS Safety Report 17190637 (Version 1)
Quarter: 2019Q4

REPORT INFORMATION
  Report Type: Spontaneous
  Country: AU (occurrence: AU)
  Receive Date: 20191223
  Receipt Date: 20191223
  Transmission Date: 20200122
  Serious: Yes (Hospitalization)
  Sender: FDA-Public Use
  Company Number: AU-ACCORD-167515

PATIENT
  Age: 55 Year
  Sex: Female

DRUGS (9)
  1. RIFAMPICIN [Concomitant]
     Active Substance: RIFAMPIN
  2. QUETIAPINE. [Suspect]
     Active Substance: QUETIAPINE
     Indication: BIPOLAR DISORDER
     Dosage: REDUCED TO 50 MG DAILY,  INCREASED TO 100 MG DAILY
     Route: 048
  3. CLARITHROMYCIN. [Concomitant]
     Active Substance: CLARITHROMYCIN
     Dosage: 500MG TWICE DAILY
     Route: 048
  4. LINEZOLID. [Concomitant]
     Active Substance: LINEZOLID
     Dosage: 400 MG DAILY
     Route: 048
  5. CLOFAZIMINE [Suspect]
     Active Substance: CLOFAZIMINE
     Indication: ULCER
     Dosage: 10 0MG DAILY
     Route: 048
  6. CEFALEXIN [Concomitant]
     Active Substance: CEPHALEXIN
     Indication: ULCER
     Route: 048
  7. TIGECYCLINE. [Suspect]
     Active Substance: TIGECYCLINE
     Indication: MYCOBACTERIUM ABSCESSUS INFECTION
     Dosage: 100 MG OVER 24 HOURS
     Route: 042
  8. AMIKACIN. [Concomitant]
     Active Substance: AMIKACIN
     Indication: MYCOBACTERIUM ABSCESSUS INFECTION
     Dosage: 500 MG DAILY
     Route: 042
  9. DOXYCYCLINE. [Concomitant]
     Active Substance: DOXYCYCLINE
     Dosage: 100MG TWICE DAILY

REACTIONS (3)
  - Drug level decreased [Unknown]
  - Oedema peripheral [Unknown]
  - Liver function test abnormal [Recovering/Resolving]
